FAERS Safety Report 24799005 (Version 2)
Quarter: 2025Q1

REPORT INFORMATION
  Report Type: Report from Study
  Country: US (occurrence: US)
  Receive Date: 20250102
  Receipt Date: 20250130
  Transmission Date: 20250409
  Serious: No
  Sender: SUNOVION
  Company Number: US-SUMITOMO PHARMA SWITZERLAND GMBH-2024SPA006219

PATIENT

DRUGS (2)
  1. ORGOVYX [Suspect]
     Active Substance: RELUGOLIX
     Indication: Tongue neoplasm malignant stage unspecified
     Dosage: 360 MG, SINGLE
     Route: 048
     Dates: start: 20241119, end: 20241119
  2. ORGOVYX [Suspect]
     Active Substance: RELUGOLIX
     Dosage: 120 MG, QD
     Route: 048
     Dates: start: 20241120

REACTIONS (3)
  - Hot flush [Unknown]
  - Fatigue [Unknown]
  - Off label use [Unknown]
